FAERS Safety Report 8664139 (Version 5)
Quarter: 2015Q2

REPORT INFORMATION
  Report Type: Spontaneous
  Country: US (occurrence: US)
  Receive Date: 20120713
  Receipt Date: 20150514
  Transmission Date: 20150821
  Serious: Yes (Disabling)
  Sender: FDA-Public Use
  Company Number: US-MSD-1207USA001011

PATIENT
  Sex: Male
  Weight: 98.41 kg

DRUGS (3)
  1. PROPECIA [Suspect]
     Active Substance: FINASTERIDE
     Indication: ANDROGENETIC ALOPECIA
     Dosage: 1 MG, UNK
     Route: 048
     Dates: start: 20040614, end: 20050205
  2. PROPECIA [Suspect]
     Active Substance: FINASTERIDE
     Dosage: 1 MG, UNK
     Route: 048
     Dates: start: 20100701, end: 20110822
  3. PROPECIA [Suspect]
     Active Substance: FINASTERIDE
     Dosage: 1 MG, UNK
     Route: 048
     Dates: start: 20110922, end: 20111101

REACTIONS (17)
  - Muscle atrophy [Unknown]
  - Asthma [Unknown]
  - Fatigue [Unknown]
  - Testicular atrophy [Unknown]
  - Insomnia [Unknown]
  - Asthenia [Unknown]
  - Cognitive disorder [Not Recovered/Not Resolved]
  - Hormone level abnormal [Unknown]
  - Genital atrophy [Unknown]
  - Blood testosterone decreased [Unknown]
  - Hernia [Unknown]
  - Erectile dysfunction [Unknown]
  - Disability [Unknown]
  - Pain in extremity [Unknown]
  - Feeling abnormal [Unknown]
  - Loss of libido [Unknown]
  - Sexual dysfunction [Not Recovered/Not Resolved]

NARRATIVE: CASE EVENT DATE: 201005
